FAERS Safety Report 23361844 (Version 2)
Quarter: 2024Q1

REPORT INFORMATION
  Report Type: Spontaneous
  Country: US (occurrence: US)
  Receive Date: 20240103
  Receipt Date: 20240213
  Transmission Date: 20240410
  Serious: No
  Sender: FDA-Public Use
  Company Number: US-PFIZER INC-202300455887

PATIENT
  Age: 67 Year
  Sex: Female
  Weight: 97.52 kg

DRUGS (2)
  1. PAXLOVID [Suspect]
     Active Substance: NIRMATRELVIR\RITONAVIR
     Indication: COVID-19 treatment
     Dosage: [PF-07321332 150 MG]/[RITONAVIR 200 MG]; 2X/DAY(TWO WHITE TABLET AND ONE PINK TABLET)
     Dates: start: 20231222
  2. LEVOTHYROXINE [Concomitant]
     Active Substance: LEVOTHYROXINE\LEVOTHYROXINE SODIUM
     Indication: Thyroid disorder
     Dosage: 0.100 MILLIGRAM

REACTIONS (3)
  - Incorrect dose administered [Unknown]
  - Overdose [Unknown]
  - Product packaging issue [Unknown]

NARRATIVE: CASE EVENT DATE: 20231222
